FAERS Safety Report 4294179-2 (Version None)
Quarter: 2004Q1

REPORT INFORMATION
  Report Type: 
  Country: None (occurrence: None)
  Receive Date: 20040213
  Receipt Date: 20040204
  Transmission Date: 20041129
  Serious: Yes (Hospitalization)
  Sender: FDA-Public Use
  Company Number: DE-BRISTOL-MYERS SQUIBB COMPANY-12496311

PATIENT
  Age: 62 Year
  Sex: Female
  Weight: 66 kg

DRUGS (7)
  1. PACLITAXEL [Suspect]
     Indication: OVARIAN CANCER
     Route: 042
     Dates: start: 20040112, end: 20040112
  2. RIBOCARBO [Suspect]
     Indication: OVARIAN CANCER
     Route: 042
     Dates: start: 20040112, end: 20040112
  3. GEMZAR [Suspect]
     Indication: OVARIAN CANCER
     Route: 042
     Dates: start: 20040119, end: 20040119
  4. ZOFRAN [Concomitant]
     Indication: PREMEDICATION
     Dates: start: 20040119, end: 20040121
  5. FORTECORTIN [Concomitant]
     Indication: PREMEDICATION
     Dates: start: 20040119, end: 20040121
  6. DIMETINDENE [Concomitant]
     Indication: PREMEDICATION
     Dates: start: 20040112, end: 20040112
  7. ZANTAC [Concomitant]
     Indication: PREMEDICATION
     Dates: start: 20040112, end: 20040112

REACTIONS (1)
  - CARDIAC FAILURE [None]
